FAERS Safety Report 8974151 (Version 1)
Quarter: 2012Q4

REPORT INFORMATION
  Report Type: Spontaneous
  Country: JP (occurrence: None)
  Receive Date: 20121211
  Receipt Date: 20121211
  Transmission Date: 20130627
  Serious: Yes (Other)
  Sender: FDA-Public Use
  Company Number: DSA_61295_2012

PATIENT

DRUGS (3)
  1. FLUOROURACIL [Suspect]
     Indication: OESOPHAGEAL SQUAMOUS CELL CARCINOMA
     Dosage: daily for days 1-5 and 8-12; repeated twice every 5 weeks intravenous (not otherwise specified))
     Route: 042
  2. CISPLATIN [Suspect]
     Indication: OESOPHAGEAL SQUAMOUS CELL CARCINOMA
     Dosage: daily for days 1-5 and 8-12; repeated twice every 5 weeks intravenous (not otherwise specified)
     Route: 042
  3. THERAPEUTIC RADIOPHARMACEUTICALS (THERAPEUTIC RADIOPHARMACEUTICALS) [Suspect]
     Indication: OESOPHAGEAL SQUAMOUS CELL CARCINOMA
     Dosage: 2 gy daily on days 1-5, 8-12, and 15-19; total dose of 60 gy in 30 gractions; repeated twice/5 weeks)

REACTIONS (1)
  - Bone marrow toxicity [None]
